FAERS Safety Report 6327822-4 (Version None)
Quarter: 2009Q3

REPORT INFORMATION
  Report Type: 
  Country: None (occurrence: None)
  Receive Date: 20090824
  Receipt Date: 20090818
  Transmission Date: 20100115
  Serious: Yes (Hospitalization)
  Sender: FDA-Public Use
  Company Number: 2009SP020884

PATIENT
  Age: 58 Year
  Sex: Male

DRUGS (5)
  1. DESLORATADINE [Suspect]
     Indication: URTICARIA
     Dosage: ; PO
     Route: 048
     Dates: start: 20090601, end: 20090607
  2. CIPRALEX [Concomitant]
  3. ZOPICLONE [Concomitant]
  4. BEHEPAN [Concomitant]
  5. LITHIONIT [Concomitant]

REACTIONS (1)
  - HALLUCINATION, AUDITORY [None]
